FAERS Safety Report 16874216 (Version 2)
Quarter: 2019Q4

REPORT INFORMATION
  Report Type: Report from Study
  Country: BR (occurrence: BR)
  Receive Date: 20191001
  Receipt Date: 20191012
  Transmission Date: 20200122
  Serious: Yes (Other)
  Sender: FDA-Public Use
  Company Number: PHHY2019BR226189

PATIENT
  Sex: Female

DRUGS (3)
  1. DUOTRAVATAN [BAC] [Suspect]
     Active Substance: TIMOLOL MALEATE\TRAVOPROST
     Indication: GLAUCOMA
     Dosage: 1 DRP, QHS
     Route: 065
  2. TRAVATAN [Suspect]
     Active Substance: TRAVOPROST
     Indication: PRODUCT USED FOR UNKNOWN INDICATION
     Route: 065
  3. DRUSOLOL [Concomitant]
     Active Substance: DORZOLAMIDE HYDROCHLORIDE\TIMOLOL MALEATE
     Indication: PRODUCT USED FOR UNKNOWN INDICATION
     Route: 065

REACTIONS (7)
  - Visual impairment [Not Recovered/Not Resolved]
  - Drug ineffective [Unknown]
  - Blindness transient [Unknown]
  - Intraocular pressure increased [Unknown]
  - Eye irritation [Unknown]
  - Cataract [Not Recovered/Not Resolved]
  - Glaucoma [Not Recovered/Not Resolved]
